FAERS Safety Report 26013785 (Version 1)
Quarter: 2025Q4

REPORT INFORMATION
  Report Type: Spontaneous
  Country: US (occurrence: US)
  Receive Date: 20251107
  Receipt Date: 20251107
  Transmission Date: 20260118
  Serious: Yes (Hospitalization, Other)
  Sender: AIMMUNE
  Company Number: US-AIMMUNE THERAPEUTICS, INC.-2025AIMT01171

PATIENT

DRUGS (3)
  1. VOWST [Suspect]
     Active Substance: DONOR HUMAN STOOL SPORES (ETHANOL TREATED)
     Indication: Clostridium difficile infection
     Dosage: 4 CAPSULES, 1X/DAY, FOR 3 DAYS
     Route: 048
     Dates: start: 20250205, end: 20250207
  2. VOWST [Suspect]
     Active Substance: DONOR HUMAN STOOL SPORES (ETHANOL TREATED)
     Dosage: 4 CAPSULES, ONCE, LAST DOSE PRIOR TO EVENTS
     Route: 048
     Dates: start: 20250207, end: 20250207
  3. AMOXICILLIN [Concomitant]
     Active Substance: AMOXICILLIN
     Indication: Cellulitis
     Dosage: UNK
     Dates: start: 20250417, end: 20250507

REACTIONS (5)
  - Clostridium difficile colitis [Recovered/Resolved]
  - Gastroduodenal haemorrhage [Recovered/Resolved]
  - Clostridium difficile colitis [Not Recovered/Not Resolved]
  - Urinary tract infection [Recovered/Resolved]
  - Cellulitis [Recovered/Resolved]

NARRATIVE: CASE EVENT DATE: 20250417
